FAERS Safety Report 4782738-X (Version None)
Quarter: 2005Q3

REPORT INFORMATION
  Report Type: 
  Country: None (occurrence: None)
  Receive Date: 20050929
  Receipt Date: 20050908
  Transmission Date: 20060218
  Serious: Yes (Other)
  Sender: FDA-Public Use
  Company Number: 417308

PATIENT
  Age: 66 Year
  Sex: Male

DRUGS (5)
  1. COREG [Suspect]
     Indication: HYPERTENSION
     Route: 048
     Dates: start: 20050801
  2. LIPITOR [Concomitant]
  3. HYZAAR [Concomitant]
  4. HYGROTON [Concomitant]
  5. ATENOLOL [Concomitant]
     Indication: HYPERTENSION

REACTIONS (2)
  - ANGINA PECTORIS [None]
  - PALPITATIONS [None]
